FAERS Safety Report 7588346-X (Version None)
Quarter: 2011Q3

REPORT INFORMATION
  Report Type: 
  Country: None (occurrence: None)
  Receive Date: 20110705
  Receipt Date: 20110624
  Transmission Date: 20111222
  Serious: Yes (Hospitalization)
  Sender: FDA-Public Use
  Company Number: CN-US-EMD SERONO, INC.-7066868

PATIENT
  Sex: Female
  Weight: 54 kg

DRUGS (3)
  1. GONAL-F [Suspect]
     Indication: OVULATION INDUCTION
     Route: 058
     Dates: start: 20100824, end: 20100831
  2. GONAL-F [Suspect]
     Route: 058
     Dates: start: 20100901, end: 20100902
  3. LUVERIS [Suspect]
     Indication: OVULATION INDUCTION
     Route: 030

REACTIONS (1)
  - STILLBIRTH [None]
